FAERS Safety Report 5654494-4 (Version None)
Quarter: 2008Q1

REPORT INFORMATION
  Report Type: 
  Country: None (occurrence: None)
  Receive Date: 20080205
  Receipt Date: 20070806
  Transmission Date: 20080703
  Serious: Yes (Hospitalization)
  Sender: FDA-Public Use
  Company Number: MEDI-0005925

PATIENT
  Age: 48 Year
  Sex: Male

DRUGS (6)
  1. ETHYOL [Suspect]
     Indication: RADIOTHERAPY
     Dosage: 500 MG, 5 IN 5 D, SUBCUTANEOUS; 500 MG, 5 IN 5 D, SUBCUTANEOUS
     Route: 058
     Dates: start: 20070706, end: 20070717
  2. ETHYOL [Suspect]
     Indication: RADIOTHERAPY
     Dosage: 500 MG, 5 IN 5 D, SUBCUTANEOUS; 500 MG, 5 IN 5 D, SUBCUTANEOUS
     Route: 058
     Dates: start: 20070726, end: 20070727
  3. RADIATION THERAPY [Concomitant]
  4. ERBITUX [Concomitant]
  5. ALLOPURINOL (ALLOPURINAL) [Concomitant]
  6. CHEMOTHERAPY [Concomitant]

REACTIONS (3)
  - NAUSEA [None]
  - PYREXIA [None]
  - VOMITING [None]
